FAERS Safety Report 18414368 (Version 1)
Quarter: 2020Q4

REPORT INFORMATION
  Report Type: Spontaneous
  Country: US (occurrence: US)
  Receive Date: 20201021
  Receipt Date: 20201021
  Transmission Date: 20210114
  Serious: No
  Sender: FDA-Public Use
  Company Number: None

PATIENT
  Age: 71 Year
  Sex: Male
  Weight: 111.13 kg

DRUGS (9)
  1. AMLODIPINE BESYLATE. [Concomitant]
     Active Substance: AMLODIPINE BESYLATE
  2. LISINOPRIL/ HYDROCHLOROTHIAZIDE [Concomitant]
     Active Substance: HYDROCHLOROTHIAZIDE\LISINOPRIL
  3. METOPROLOL SUCCINATE. [Concomitant]
     Active Substance: METOPROLOL SUCCINATE
  4. LEVOFLOXACIN 500MG TAB [Suspect]
     Active Substance: LEVOFLOXACIN
     Indication: BRONCHITIS
     Dosage: ?          QUANTITY:10 DF DOSAGE FORM;?
     Route: 048
     Dates: start: 20190829, end: 20190907
  5. LEVOFLOXACIN 500MG TAB [Suspect]
     Active Substance: LEVOFLOXACIN
     Indication: BRONCHOSPASM
     Dosage: ?          QUANTITY:10 DF DOSAGE FORM;?
     Route: 048
     Dates: start: 20190829, end: 20190907
  6. VITAMIN C [Concomitant]
     Active Substance: ASCORBIC ACID
  7. VITAMIN D [Concomitant]
     Active Substance: VITAMIN D NOS
  8. MULTI-VITAMIN [Concomitant]
     Active Substance: .ALPHA.-TOCOPHEROL ACETATE, DL-\ASCORBIC ACID\CYANOCOBALAMIN\FLUORIDE ION\FOLIC ACID\NIACIN\PYRIDOXINE\RIBOFLAVIN\THIAMINE\VITAMIN A\VITAMIN D
  9. FLUVASTATIN [Concomitant]
     Active Substance: FLUVASTATIN SODIUM

REACTIONS (8)
  - Trigger finger [None]
  - Back pain [None]
  - Inflammation [None]
  - Drug interaction [None]
  - Wheelchair user [None]
  - Pain in extremity [None]
  - Gait inability [None]
  - Tendon disorder [None]

NARRATIVE: CASE EVENT DATE: 20190911
